FAERS Safety Report 25978758 (Version 1)
Quarter: 2025Q4

REPORT INFORMATION
  Report Type: Other
  Country: CN (occurrence: CN)
  Receive Date: 20251030
  Receipt Date: 20251030
  Transmission Date: 20260117
  Serious: Yes (Death, Hospitalization)
  Sender: NOVITIUM PHARMA
  Company Number: CN-NOVITIUM PHARMA-000195

PATIENT
  Age: 5 Month
  Sex: Male

DRUGS (3)
  1. LEVOCARNITINE [Suspect]
     Active Substance: LEVOCARNITINE
     Indication: Methylmalonic acidaemia
  2. VITAMIN B6 [Concomitant]
     Active Substance: PYRIDOXINE HYDROCHLORIDE
     Indication: Methylmalonic acidaemia
  3. VITAMIN B12 [Concomitant]
     Active Substance: CYANOCOBALAMIN
     Indication: Methylmalonic acidaemia

REACTIONS (1)
  - Treatment failure [Fatal]
